FAERS Safety Report 10997538 (Version 1)
Quarter: 2015Q2

REPORT INFORMATION
  Report Type: Spontaneous
  Country: US (occurrence: US)
  Receive Date: 20150408
  Receipt Date: 20150408
  Transmission Date: 20150821
  Serious: No
  Sender: FDA-Public Use
  Company Number: US-BANPHARM-20142831

PATIENT
  Age: 93 Year
  Sex: Female
  Weight: 70.31 kg

DRUGS (8)
  1. FLORASTOR [Concomitant]
     Active Substance: SACCHAROMYCES CEREVISIAE
  2. VITAMIN B12 [Concomitant]
     Active Substance: CYANOCOBALAMIN
  3. ALPHAGAN EYE DROPS [Concomitant]
  4. CALCIUM SUPPLEMENT (UNKNOWN) [Concomitant]
  5. BAYER? 81MG ENTERIC ASA [Concomitant]
  6. D-3 SUPPLEMENT [Concomitant]
  7. LEVOTHYROXINE [Concomitant]
     Active Substance: LEVOTHYROXINE
  8. ALEVE [Suspect]
     Active Substance: NAPROXEN SODIUM
     Indication: PAIN
     Dosage: 1 DF, BID,
     Route: 048

REACTIONS (3)
  - Incorrect drug administration duration [Unknown]
  - Throat irritation [Recovered/Resolved]
  - Wrong technique in drug usage process [Unknown]

NARRATIVE: CASE EVENT DATE: 20140624
